FAERS Safety Report 5461090-0 (Version None)
Quarter: 2007Q3

REPORT INFORMATION
  Report Type: 
  Country: None (occurrence: None)
  Receive Date: 20070920
  Receipt Date: 20070917
  Transmission Date: 20080115
  Serious: Yes (Hospitalization, Other)
  Sender: FDA-Public Use
  Company Number: GB-RB-008019-07

PATIENT
  Sex: Male

DRUGS (2)
  1. SUBOXONE [Suspect]
     Route: 065
  2. METHADONE HCL [Concomitant]
     Dosage: DOSAGE UNKNOWN.
     Route: 065

REACTIONS (2)
  - AMNESIA [None]
  - CONVULSION [None]
